FAERS Safety Report 11723635 (Version 1)
Quarter: 2015Q4

REPORT INFORMATION
  Report Type: Spontaneous
  Country: FR (occurrence: FR)
  Receive Date: 20151111
  Receipt Date: 20151111
  Transmission Date: 20160304
  Serious: Yes (Life-Threatening, Hospitalization, Other)
  Sender: FDA-Public Use
  Company Number: FR-GILEAD-2015-0181530

PATIENT
  Age: 55 Year
  Sex: Male
  Weight: 130 kg

DRUGS (10)
  1. AMLOR [Concomitant]
     Active Substance: AMLODIPINE BESYLATE
     Indication: HYPERTENSION
     Dosage: UNK
  2. AMAREL [Concomitant]
     Active Substance: GLIMEPIRIDE
     Indication: TYPE 2 DIABETES MELLITUS
     Dosage: UNK
  3. GLUCOPHAGE [Concomitant]
     Active Substance: METFORMIN HYDROCHLORIDE
     Indication: TYPE 2 DIABETES MELLITUS
     Dosage: UNK
  4. SOVALDI [Suspect]
     Active Substance: SOFOSBUVIR
     Indication: HEPATITIS C
     Dosage: 400 MG, QD
     Route: 048
     Dates: start: 20141204, end: 20150225
  5. NASONEX [Concomitant]
     Active Substance: MOMETASONE FUROATE
     Indication: RHINITIS ALLERGIC
     Dosage: UNK
  6. DACLATASVIR. [Suspect]
     Active Substance: DACLATASVIR
     Indication: HEPATITIS C
     Dosage: 60 MG, QD
     Route: 048
     Dates: start: 20141204, end: 20150225
  7. TAHOR [Concomitant]
     Active Substance: ATORVASTATIN CALCIUM
     Indication: HYPERCHOLESTEROLAEMIA
  8. TAHOR [Concomitant]
     Active Substance: ATORVASTATIN CALCIUM
     Indication: DYSLIPIDAEMIA
     Dosage: UNK
  9. AERIUS [Concomitant]
     Active Substance: DESLORATADINE
     Indication: RHINITIS ALLERGIC
     Dosage: UNK
  10. METHADONE AP HP [Concomitant]
     Active Substance: METHADONE HYDROCHLORIDE
     Indication: DRUG ABUSER
     Dosage: UNK
     Dates: start: 2014

REACTIONS (4)
  - Dyspnoea [Recovering/Resolving]
  - Ejection fraction decreased [Recovering/Resolving]
  - Cardiac failure [Recovering/Resolving]
  - Congestive cardiomyopathy [Recovering/Resolving]

NARRATIVE: CASE EVENT DATE: 201504
